FAERS Safety Report 4781706-1 (Version None)
Quarter: 2005Q3

REPORT INFORMATION
  Report Type: 
  Country: None (occurrence: None)
  Receive Date: 20050927
  Receipt Date: 20050909
  Transmission Date: 20060218
  Serious: Yes (Other)
  Sender: FDA-Public Use
  Company Number: 2005-01761

PATIENT
  Age: 80 Year
  Sex: Male
  Weight: 86.2 kg

DRUGS (9)
  1. VELCADE [Suspect]
     Indication: MULTIPLE MYELOMA
     Dosage: 2.80 IV BOLUS
     Route: 040
     Dates: start: 20050517
  2. DEXAMETHASONE [Concomitant]
  3. KYTRIL [Concomitant]
  4. HYDRALAZINE HCL [Concomitant]
  5. PLAVIX [Concomitant]
  6. VYTORIN [Concomitant]
  7. ARANESP [Concomitant]
  8. ACCUPRIL [Concomitant]
  9. ASPIRIN ENTERIC COATED K.P. (ACETYLCALICYLIC ACID) [Concomitant]

REACTIONS (20)
  - AORTIC CALCIFICATION [None]
  - ARTHRALGIA [None]
  - BACK PAIN [None]
  - BODY HEIGHT DECREASED [None]
  - CONSTIPATION [None]
  - DIVERTICULUM INTESTINAL [None]
  - DRUG INEFFECTIVE [None]
  - HERPES ZOSTER [None]
  - INSOMNIA [None]
  - INTERVERTEBRAL DISC DEGENERATION [None]
  - KYPHOSIS [None]
  - MUSCULOSKELETAL DISCOMFORT [None]
  - NEUROPATHY PERIPHERAL [None]
  - OSTEOARTHRITIS [None]
  - PATHOLOGICAL FRACTURE [None]
  - PLATELET COUNT DECREASED [None]
  - SCROTAL PAIN [None]
  - SPINAL COLUMN STENOSIS [None]
  - THERAPY NON-RESPONDER [None]
  - TOOTH FRACTURE [None]
